FAERS Safety Report 25523579 (Version 1)
Quarter: 2025Q3

REPORT INFORMATION
  Report Type: Spontaneous
  Country: US (occurrence: US)
  Receive Date: 20250707
  Receipt Date: 20250707
  Transmission Date: 20251021
  Serious: Yes (Hospitalization)
  Sender: ROCHE
  Company Number: US-ROCHE-10000326284

PATIENT
  Sex: Male

DRUGS (2)
  1. ACTEMRA ACTPEN [Suspect]
     Active Substance: TOCILIZUMAB
     Indication: Giant cell arteritis
     Route: 058
  2. INSULIN NOS [Concomitant]
     Active Substance: INSULIN NOS

REACTIONS (13)
  - Biliary tract disorder [Not Recovered/Not Resolved]
  - Abdominal injury [Unknown]
  - Biliary tract disorder [Unknown]
  - Ill-defined disorder [Unknown]
  - Escherichia infection [Unknown]
  - Gait disturbance [Unknown]
  - Confusional state [Unknown]
  - Ascites [Unknown]
  - Gastrointestinal disorder [Unknown]
  - Illness [Unknown]
  - Speech disorder [Unknown]
  - Emotional distress [Unknown]
  - Gallbladder disorder [Not Recovered/Not Resolved]
